FAERS Safety Report 15246579 (Version 1)
Quarter: 2018Q3

REPORT INFORMATION
  Report Type: Spontaneous
  Country: US (occurrence: US)
  Receive Date: 20180806
  Receipt Date: 20180806
  Transmission Date: 20181010
  Serious: Yes (Other)
  Sender: FDA-Public Use
  Company Number: US-PRINSTON PHARMACEUTICAL INC.-2018PRN00543

PATIENT
  Age: 85 Year
  Sex: Female
  Weight: 63.49 kg

DRUGS (11)
  1. VALSARTAN. [Suspect]
     Active Substance: VALSARTAN
     Indication: HYPERTENSION
     Dosage: 80 MG, 1X/DAY
     Route: 048
  2. UNSPECIFIED HORMONE PILL [Concomitant]
  3. TRAMADOL. [Concomitant]
     Active Substance: TRAMADOL
     Dosage: UNK, 3X/DAY
  4. PROAIR HFA [Concomitant]
     Active Substance: ALBUTEROL SULFATE
     Dosage: UNK, AS NEEDED
  5. FLOVENT HFA [Concomitant]
     Active Substance: FLUTICASONE PROPIONATE
     Dosage: 2 ACTUATIONS, 2X/DAY
  6. VENTOLIN HFA [Concomitant]
     Active Substance: ALBUTEROL SULFATE
     Dosage: 2 ACTUATIONS, 2X/DAY
  7. GABAPENTIN. [Concomitant]
     Active Substance: GABAPENTIN
     Dosage: 100 MG, 3X/DAY
  8. RANITIDINE. [Concomitant]
     Active Substance: RANITIDINE
     Dosage: 150 MG, AS NEEDED
  9. WELLBUTRIN [Concomitant]
     Active Substance: BUPROPION HYDROCHLORIDE
  10. VALSARTAN. [Suspect]
     Active Substance: VALSARTAN
     Indication: HYPERTENSION
     Dosage: 40 MG, 1X/DAY
     Route: 048
     Dates: start: 2008
  11. BUPROPION HCL [Concomitant]
     Active Substance: BUPROPION HYDROCHLORIDE

REACTIONS (5)
  - Fatigue [Not Recovered/Not Resolved]
  - Hypertension [Recovered/Resolved]
  - Bone disorder [Not Recovered/Not Resolved]
  - Urinary tract infection [Recovered/Resolved]
  - Renal cancer [Recovered/Resolved]

NARRATIVE: CASE EVENT DATE: 2008
